FAERS Safety Report 15424245 (Version 1)
Quarter: 2018Q3

REPORT INFORMATION
  Report Type: Spontaneous
  Country: GB (occurrence: GB)
  Receive Date: 20180925
  Receipt Date: 20180925
  Transmission Date: 20181010
  Serious: Yes (Other)
  Sender: FDA-Public Use
  Company Number: GB-SA-2018SA264581

PATIENT
  Age: 53 Year

DRUGS (12)
  1. CIPROFLOXACIN HYDROCHLORIDE. [Suspect]
     Active Substance: CIPROFLOXACIN HYDROCHLORIDE
  2. AMLODIPINE [Concomitant]
     Active Substance: AMLODIPINE BESYLATE
  3. APIDRA [Concomitant]
     Active Substance: INSULIN GLULISINE
     Dosage: UNK, TID
  4. ATORVASTATIN [Concomitant]
     Active Substance: ATORVASTATIN
  5. CODEINE [Concomitant]
     Active Substance: CODEINE
     Dosage: 60MG FOUR TIMES A DAY AS NECESSARY
  6. DOCUSATE [Concomitant]
     Active Substance: DOCUSATE
  7. RIFAMPICIN [Suspect]
     Active Substance: RIFAMPIN
     Dosage: 300MG BD UNTIL 23/4/18
  8. INSULIN DETEMIR [Concomitant]
     Active Substance: INSULIN DETEMIR
  9. BEZAFIBRATE [Concomitant]
     Active Substance: BEZAFIBRATE
  10. CIPROFLOXACIN. [Concomitant]
     Active Substance: CIPROFLOXACIN
     Dosage: UNTIL 23/4/18
  11. CANDESARTAN. [Concomitant]
     Active Substance: CANDESARTAN
     Dosage: HELD DUE TO ACUTE KIDNEY INJURY
  12. METFORMIN [Concomitant]
     Active Substance: METFORMIN HYDROCHLORIDE

REACTIONS (3)
  - Malaise [Unknown]
  - Acute kidney injury [Recovered/Resolved]
  - Sepsis [Unknown]
